FAERS Safety Report 9114515 (Version 1)
Quarter: 2013Q1

REPORT INFORMATION
  Report Type: Spontaneous
  Country: US (occurrence: None)
  Receive Date: 20130220
  Receipt Date: 20130220
  Transmission Date: 20140127
  Serious: Yes (Hospitalization)
  Sender: FDA-Public Use
  Company Number: None

PATIENT
  Age: 57 Year
  Sex: 0
  Weight: 110 kg

DRUGS (1)
  1. BUPROPION [Suspect]
     Indication: BIPOLAR I DISORDER
     Route: 048

REACTIONS (1)
  - Convulsion [None]
